FAERS Safety Report 10678314 (Version 1)
Quarter: 2014Q4

REPORT INFORMATION
  Report Type: Spontaneous
  Country: KR (occurrence: None)
  Receive Date: 20141223
  Receipt Date: 20141223
  Transmission Date: 20150529
  Serious: Yes (Other)
  Sender: FDA-Public Use
  Company Number: INT_00575_2014

PATIENT
  Age: 50 Year
  Sex: Male

DRUGS (3)
  1. LAMIVUDINE. [Concomitant]
     Active Substance: LAMIVUDINE
  2. CISPLATIN. [Suspect]
     Active Substance: CISPLATIN
     Indication: LUNG NEOPLASM MALIGNANT
     Dosage: ON DAYS 1-3
     Route: 042
     Dates: end: 2008
  3. ETOPOSIDE. [Suspect]
     Active Substance: ETOPOSIDE
     Indication: LUNG NEOPLASM MALIGNANT
     Route: 042
     Dates: end: 200804

REACTIONS (1)
  - Aortic thrombosis [None]

NARRATIVE: CASE EVENT DATE: 2008
